FAERS Safety Report 20658631 (Version 1)
Quarter: 2022Q1

REPORT INFORMATION
  Report Type: Spontaneous
  Country: CN (occurrence: CN)
  Receive Date: 20220331
  Receipt Date: 20220331
  Transmission Date: 20220423
  Serious: Yes (Other)
  Sender: FDA-Public Use
  Company Number: CN-GLAXOSMITHKLINE-CNCH2022GSK012313

PATIENT
  Age: 49 Year
  Sex: Female

DRUGS (1)
  1. LORATADINE [Suspect]
     Active Substance: LORATADINE
     Indication: Rhinitis allergic
     Dosage: 5 MG, QD

REACTIONS (4)
  - Cystoid macular oedema [Recovered/Resolved]
  - Cataract nuclear [Recovered/Resolved]
  - Vitreous detachment [Recovered/Resolved]
  - Vision blurred [Recovered/Resolved]
